FAERS Safety Report 5562517-6 (Version None)
Quarter: 2007Q4

REPORT INFORMATION
  Report Type: 
  Country: None (occurrence: None)
  Receive Date: 20071217
  Receipt Date: 20071205
  Transmission Date: 20080405
  Serious: Yes (Other)
  Sender: FDA-Public Use
  Company Number: AT-BAYER-200717247GPV

PATIENT
  Age: 42 Year
  Sex: Female

DRUGS (1)
  1. MIRENA [Suspect]
     Indication: CONTRACEPTION
     Dosage: TOTAL DAILY DOSE: 20 ?G/D
     Route: 015
     Dates: start: 20071120, end: 20071127

REACTIONS (4)
  - FORMICATION [None]
  - OEDEMA PERIPHERAL [None]
  - PHLEBITIS [None]
  - SKIN DISCOLOURATION [None]
